FAERS Safety Report 21503552 (Version 7)
Quarter: 2023Q4

REPORT INFORMATION
  Report Type: Spontaneous
  Country: BR (occurrence: BR)
  Receive Date: 20221025
  Receipt Date: 20231122
  Transmission Date: 20240110
  Serious: Yes (Other)
  Sender: FDA-Public Use
  Company Number: BR-NOVARTISPH-NVSC2022BR237294

PATIENT
  Age: 8 Year
  Sex: Male
  Weight: 45.6 kg

DRUGS (12)
  1. TAFINLAR [Suspect]
     Active Substance: DABRAFENIB MESYLATE
     Indication: Product used for unknown indication
     Dosage: 75 MG
     Route: 065
  2. TAFINLAR [Suspect]
     Active Substance: DABRAFENIB MESYLATE
     Dosage: 150 MG, BID
     Route: 048
     Dates: start: 20220722
  3. TAFINLAR [Suspect]
     Active Substance: DABRAFENIB MESYLATE
     Dosage: 75 MG, Q12H
     Route: 065
     Dates: start: 20221022
  4. TAFINLAR [Suspect]
     Active Substance: DABRAFENIB MESYLATE
     Dosage: 100 MG, Q12H
     Route: 065
     Dates: start: 20221129
  5. TAFINLAR [Suspect]
     Active Substance: DABRAFENIB MESYLATE
     Dosage: UNK, (120 CAPSULES)
     Route: 048
  6. MEKINIST [Suspect]
     Active Substance: TRAMETINIB DIMETHYL SULFOXIDE
     Indication: Product used for unknown indication
     Dosage: 2 MG
     Route: 065
  7. MEKINIST [Suspect]
     Active Substance: TRAMETINIB DIMETHYL SULFOXIDE
     Dosage: 2 MG, QD
     Route: 048
     Dates: start: 20220722
  8. MEKINIST [Suspect]
     Active Substance: TRAMETINIB DIMETHYL SULFOXIDE
     Dosage: 1 MG, QD (AT NIGHT)
     Route: 065
     Dates: start: 20221022
  9. MEKINIST [Suspect]
     Active Substance: TRAMETINIB DIMETHYL SULFOXIDE
     Dosage: 1 MG, QD (AT NIGHT)
     Route: 065
     Dates: start: 20221129
  10. MEKINIST [Suspect]
     Active Substance: TRAMETINIB DIMETHYL SULFOXIDE
     Dosage: UNK, (ADULT USE, 30 COATED TABLETS)
     Route: 048
  11. MEKINIST [Suspect]
     Active Substance: TRAMETINIB DIMETHYL SULFOXIDE
     Dosage: UNK, (MANUFACTURING DATE: SEP 2021, NS: 10378939654967, ADULT USE, 30 COATED TABLETS)
     Route: 048
  12. CELECOXIB [Concomitant]
     Active Substance: CELECOXIB
     Indication: Analgesic intervention supportive therapy
     Dosage: 100 MG, Q12H
     Route: 048
     Dates: start: 20221110, end: 20221125

REACTIONS (18)
  - Blindness [Recovered/Resolved]
  - Blindness [Recovered/Resolved]
  - Anisocoria [Recovered/Resolved]
  - Amaurosis [Recovered/Resolved]
  - Chorioretinitis [Recovered/Resolved]
  - Optic neuritis [Recovered/Resolved]
  - Blindness unilateral [Recovered/Resolved]
  - Optic nerve disorder [Recovered/Resolved]
  - Retinal disorder [Recovered/Resolved]
  - Ganglioglioma [Recovering/Resolving]
  - Facial paralysis [Recovered/Resolved with Sequelae]
  - Septic shock [Unknown]
  - Epilepsy [Recovered/Resolved]
  - Hypotension [Recovered/Resolved]
  - Papillitis [Recovered/Resolved]
  - Neoplasm [Recovering/Resolving]
  - Neurotrophic keratopathy [Recovered/Resolved]
  - Rash [Recovered/Resolved]

NARRATIVE: CASE EVENT DATE: 20170307
